FAERS Safety Report 6566618-5 (Version None)
Quarter: 2010Q1

REPORT INFORMATION
  Report Type: 
  Country: None (occurrence: None)
  Receive Date: 20100202
  Receipt Date: 20100127
  Transmission Date: 20100710
  Serious: Yes (Life-Threatening, Other)
  Sender: FDA-Public Use
  Company Number: GB-ROCHE-663822

PATIENT
  Sex: Female
  Weight: 73 kg

DRUGS (5)
  1. TOCILIZUMAB [Suspect]
     Indication: RHEUMATOID ARTHRITIS
     Dosage: FORM: INFUSION, FREQUENCY: 4/52, LAST DOSE PRIOR TO SAE: 22 SEPTEMBER 2009
     Route: 042
     Dates: start: 20090407, end: 20090922
  2. TOCILIZUMAB [Suspect]
     Dosage: FORM: INFUSION. STUDY MA21573
     Route: 042
     Dates: end: 20090407
  3. PREDNISOLONE [Suspect]
     Indication: RHEUMATOID ARTHRITIS
     Dosage: START DATE: PRE DATES STUDY
     Route: 048
  4. METHOTREXATE [Concomitant]
     Dosage: START DATE: PRE DATES STUDY
  5. FOLIC ACID [Concomitant]
     Dosage: START DATE: PRE DATES STUDY

REACTIONS (2)
  - COLITIS ISCHAEMIC [None]
  - RENAL NEOPLASM [None]
